FAERS Safety Report 11737410 (Version 8)
Quarter: 2018Q1

REPORT INFORMATION
  Report Type: Report from Study
  Country: JP (occurrence: JP)
  Receive Date: 20151113
  Receipt Date: 20180314
  Transmission Date: 20180508
  Serious: Yes (Hospitalization)
  Sender: FDA-Public Use
  Company Number: JP-EISAI MEDICAL RESEARCH-EC-2015-012004

PATIENT
  Age: 74 Year
  Sex: Male
  Weight: 73 kg

DRUGS (8)
  1. LENVIMA [Suspect]
     Active Substance: LENVATINIB
     Indication: PAPILLARY THYROID CANCER
     Route: 048
     Dates: start: 20151001, end: 20151104
  2. BESOFTEN [Concomitant]
     Active Substance: PENTOSAN POLYSULFATE SODIUM
  3. LENVIMA [Suspect]
     Active Substance: LENVATINIB
     Route: 048
     Dates: start: 20151224, end: 20160120
  4. LEVOTHYROXINE SODIUM HYDRATE [Concomitant]
     Active Substance: LEVOTHYROXINE SODIUM
  5. LENVIMA [Suspect]
     Active Substance: LENVATINIB
     Route: 048
     Dates: start: 20151111, end: 20151204
  6. LENVIMA [Suspect]
     Active Substance: LENVATINIB
     Route: 048
     Dates: start: 20160203, end: 20160413
  7. LENVIMA [Suspect]
     Active Substance: LENVATINIB
     Route: 048
     Dates: start: 20160414, end: 20160506
  8. HIRUDOID [Concomitant]
     Active Substance: GLYCOSAMINOGLYCANS

REACTIONS (4)
  - Abdominal pain [Recovering/Resolving]
  - Pneumonia aspiration [Recovering/Resolving]
  - Cholecystitis acute [Recovered/Resolved]
  - Decreased appetite [Recovering/Resolving]

NARRATIVE: CASE EVENT DATE: 20151205
